FAERS Safety Report 10427166 (Version 1)
Quarter: 2014Q3

REPORT INFORMATION
  Report Type: Spontaneous
  Country: US (occurrence: US)
  Receive Date: 20140903
  Receipt Date: 20140903
  Transmission Date: 20150326
  Serious: No
  Sender: FDA-Public Use
  Company Number: US-BANPHARM-20142279

PATIENT
  Age: 70 Year
  Sex: Male
  Weight: 95.25 kg

DRUGS (4)
  1. LISINOPRIL. [Concomitant]
     Active Substance: LISINOPRIL
     Indication: BLOOD PRESSURE
  2. TAMBOCOR [Concomitant]
     Active Substance: FLECAINIDE ACETATE
  3. LORAZEPAM. [Concomitant]
     Active Substance: LORAZEPAM
  4. ZYRTEC [Suspect]
     Active Substance: CETIRIZINE HYDROCHLORIDE
     Indication: HYPERSENSITIVITY
     Route: 048
     Dates: start: 20140224, end: 20140224

REACTIONS (1)
  - Drug effect incomplete [Unknown]
